FAERS Safety Report 25875293 (Version 1)
Quarter: 2025Q4

REPORT INFORMATION
  Report Type: Other
  Country: CA (occurrence: CA)
  Receive Date: 20251003
  Receipt Date: 20251003
  Transmission Date: 20260117
  Serious: Yes (Other)
  Sender: APOTEX
  Company Number: CA-PGRTD-001150707

PATIENT
  Age: 36 Year
  Sex: Male

DRUGS (1)
  1. CARBAMAZEPINE [Suspect]
     Active Substance: CARBAMAZEPINE
     Indication: Epilepsy
     Dosage: 2 EVERY 1 DAYS
     Route: 048

REACTIONS (2)
  - Product substitution issue [Recovering/Resolving]
  - Drug ineffective [Recovering/Resolving]
